FAERS Safety Report 18700734 (Version 1)
Quarter: 2021Q1

REPORT INFORMATION
  Report Type: Spontaneous
  Country: US (occurrence: US)
  Receive Date: 20210105
  Receipt Date: 20210105
  Transmission Date: 20210419
  Serious: No
  Sender: FDA-Public Use
  Company Number: US-ALLERGAN-2004849US

PATIENT
  Sex: Male
  Weight: 73.49 kg

DRUGS (4)
  1. DORZOLAMIDE TIMOLOL [Concomitant]
     Active Substance: DORZOLAMIDE
     Indication: POSTOPERATIVE CARE
     Dosage: 1 GTT, BID
     Dates: start: 201912
  2. PREDNISOLONE ACETATE, 1.0% [Suspect]
     Active Substance: PREDNISOLONE ACETATE
     Indication: POSTOPERATIVE CARE
  3. DORZOLAMIDE TIMOLOL [Concomitant]
     Active Substance: DORZOLAMIDE
     Indication: PREOPERATIVE CARE
  4. PREDNISOLONE ACETATE, 1.0% [Suspect]
     Active Substance: PREDNISOLONE ACETATE
     Indication: PREOPERATIVE CARE
     Dosage: 2 GTT, QID
     Route: 047
     Dates: start: 201911

REACTIONS (3)
  - Product quality issue [Unknown]
  - Off label use [Unknown]
  - Eye irritation [Unknown]
